FAERS Safety Report 5761003-8 (Version None)
Quarter: 2008Q2

REPORT INFORMATION
  Report Type: 
  Country: None (occurrence: None)
  Receive Date: 20080606
  Receipt Date: 20080526
  Transmission Date: 20081010
  Serious: Yes (Hospitalization)
  Sender: FDA-Public Use
  Company Number: FR-ROCHE-566693

PATIENT
  Sex: Female

DRUGS (5)
  1. ROCEPHIN [Suspect]
     Indication: BRONCHITIS
     Dosage: FORM REPORTED AS: INJECTABLE SOLUTION.
     Route: 048
     Dates: start: 20071224, end: 20071228
  2. RULID [Suspect]
     Indication: BRONCHITIS
     Route: 048
     Dates: start: 20071224, end: 20071228
  3. ALBUTEROL [Concomitant]
  4. DESLORATADINE [Concomitant]
  5. PULMICORT [Concomitant]

REACTIONS (1)
  - RASH PUSTULAR [None]
